FAERS Safety Report 4534887-9 (Version None)
Quarter: 2004Q4

REPORT INFORMATION
  Report Type: 
  Country: None (occurrence: None)
  Receive Date: 20041222
  Receipt Date: 20040617
  Transmission Date: 20050328
  Serious: No
  Sender: FDA-Public Use
  Company Number: US-BRISTOL-MYERS SQUIBB COMPANY-12618047

PATIENT
  Sex: Male
  Weight: 73 kg

DRUGS (3)
  1. PRAVACHOL [Suspect]
     Indication: BLOOD CHOLESTEROL INCREASED
     Dates: start: 20021001
  2. OXANDRIN [Suspect]
     Indication: MUSCULAR DYSTROPHY
     Dosage: STOPPED OCT-2003, RESTARTED MAR-04
     Route: 048
     Dates: start: 19960101
  3. FOSAMAX [Concomitant]
     Indication: OSTEOPOROSIS
     Dates: start: 20010101

REACTIONS (1)
  - MYALGIA [None]
